FAERS Safety Report 8606430 (Version 2)
Quarter: 2018Q4

REPORT INFORMATION
  Report Type: Spontaneous
  Country: US (occurrence: US)
  Receive Date: 20120608
  Receipt Date: 20181210
  Transmission Date: 20190205
  Serious: No
  Sender: FDA-Public Use
  Company Number: US-ASTRAZENECA-2012SE12159

PATIENT
  Age: 55 Year
  Sex: Male

DRUGS (2)
  1. PULMICORT FLEXHALER [Suspect]
     Active Substance: BUDESONIDE
     Route: 055
     Dates: start: 201102
  2. PULMICORT FLEXHALER [Suspect]
     Active Substance: BUDESONIDE
     Dosage: 2 PUFFS IN THE MORNING AND 2 PUFFS AT NIGHT BEFORE BEDTIME
     Route: 055

REACTIONS (11)
  - Blood pressure systolic increased [Unknown]
  - Malaise [Unknown]
  - Disturbance in attention [Unknown]
  - Off label use [Unknown]
  - Intentional product misuse [Unknown]
  - Neck pain [Unknown]
  - Respiratory tract congestion [Unknown]
  - Vomiting [Unknown]
  - Dyspnoea exertional [Unknown]
  - Fatigue [Unknown]
  - Insomnia [Unknown]

NARRATIVE: CASE EVENT DATE: 201011
